FAERS Safety Report 5250031-7 (Version None)
Quarter: 2007Q1

REPORT INFORMATION
  Report Type: 
  Country: None (occurrence: None)
  Receive Date: 20070228
  Receipt Date: 20060126
  Transmission Date: 20070707
  Serious: No
  Sender: FDA-Public Use
  Company Number: US-GLAXOSMITHKLINE-A0591097A

PATIENT
  Age: 53 Year
  Sex: Female

DRUGS (5)
  1. LAMICTAL [Suspect]
     Indication: HYPOMANIA
     Dosage: 100MG PER DAY
     Route: 048
     Dates: start: 20050829, end: 20050908
  2. ESTRATAB [Concomitant]
  3. ADDERALL 10 [Concomitant]
  4. SEROQUEL [Concomitant]
  5. LORAZEPAM [Concomitant]

REACTIONS (3)
  - HEADACHE [None]
  - MUSCULOSKELETAL STIFFNESS [None]
  - RASH [None]
